FAERS Safety Report 8356644-8 (Version None)
Quarter: 2012Q2

REPORT INFORMATION
  Report Type: 
  Country: None (occurrence: None)
  Receive Date: 20120514
  Receipt Date: 20120509
  Transmission Date: 20120825
  Serious: Yes (Hospitalization)
  Sender: FDA-Public Use
  Company Number: PHHY2007JP01061

PATIENT
  Sex: Female
  Weight: 50 kg

DRUGS (4)
  1. IMATINIB MESYLATE [Suspect]
     Dosage: 200 MG, DAILY
     Route: 048
     Dates: start: 20041110, end: 20041204
  2. IMATINIB MESYLATE [Suspect]
     Dosage: 200 MG, DAILY
     Route: 048
     Dates: start: 20041210
  3. IMATINIB MESYLATE [Suspect]
     Indication: GASTROINTESTINAL STROMAL TUMOUR
     Dosage: 400 MG, DAILY
     Route: 048
     Dates: start: 20040910, end: 20041005
  4. IMATINIB MESYLATE [Suspect]
     Dosage: 200 MG, DAILY
     Route: 048
     Dates: start: 20041021, end: 20041107

REACTIONS (2)
  - BONE MARROW FAILURE [None]
  - NEUTROPHIL COUNT DECREASED [None]
